FAERS Safety Report 9119249 (Version 1)
Quarter: 2013Q1

REPORT INFORMATION
  Report Type: Spontaneous
  Country: US (occurrence: US)
  Receive Date: 20130207
  Receipt Date: 20130207
  Transmission Date: 20140127
  Serious: No
  Sender: FDA-Public Use
  Company Number: US-ASTRAZENECA-2013SE05975

PATIENT
  Age: 62 Year
  Sex: Female
  Weight: 74.8 kg

DRUGS (4)
  1. OMEPRAZOLE [Suspect]
     Indication: GASTROOESOPHAGEAL REFLUX DISEASE
     Route: 048
     Dates: start: 2010, end: 2012
  2. ASPIRIN [Concomitant]
  3. SYNTHROID [Concomitant]
     Indication: HYPOTHYROIDISM
  4. ZOLOFT [Concomitant]
     Indication: MENOPAUSE

REACTIONS (4)
  - Chest discomfort [Unknown]
  - Gastrooesophageal reflux disease [Unknown]
  - Vomiting [Unknown]
  - Drug ineffective [Unknown]
